FAERS Safety Report 20505846 (Version 1)
Quarter: 2022Q1

REPORT INFORMATION
  Report Type: Spontaneous
  Country: US (occurrence: US)
  Receive Date: 20220223
  Receipt Date: 20220223
  Transmission Date: 20220423
  Serious: No
  Sender: FDA-Public Use
  Company Number: US-GLENMARK PHARMACEUTICALS-2021GMK069599

PATIENT

DRUGS (1)
  1. CLINDAMYCIN PHOSPHATE [Suspect]
     Active Substance: CLINDAMYCIN PHOSPHATE
     Indication: Chlamydial infection
     Dosage: UNK
     Route: 065
     Dates: start: 20211222

REACTIONS (3)
  - Product use in unapproved indication [Unknown]
  - Prescription drug used without a prescription [Unknown]
  - Intercepted medication error [Unknown]

NARRATIVE: CASE EVENT DATE: 20211222
